FAERS Safety Report 24400677 (Version 1)
Quarter: 2024Q4

REPORT INFORMATION
  Report Type: Spontaneous
  Country: US (occurrence: US)
  Receive Date: 20241006
  Receipt Date: 20241006
  Transmission Date: 20250115
  Serious: No
  Sender: SANOFI AVENTIS
  Company Number: US-SA-2024SA284885

PATIENT
  Sex: Male
  Weight: 99.79 kg

DRUGS (4)
  1. DUPIXENT [Suspect]
     Active Substance: DUPILUMAB
     Indication: Dermatitis atopic
     Dosage: 300 MG, QOW
  2. ZINC [Concomitant]
     Active Substance: ZINC
  3. BIOTIN [Concomitant]
     Active Substance: BIOTIN
  4. MINERALS\VITAMINS [Concomitant]
     Active Substance: MINERALS\VITAMINS

REACTIONS (4)
  - Skin fissures [Unknown]
  - Therapeutic response shortened [Unknown]
  - Skin exfoliation [Unknown]
  - Dermatitis atopic [Unknown]
